FAERS Safety Report 17829787 (Version 1)
Quarter: 2020Q2

REPORT INFORMATION
  Report Type: Spontaneous
  Country: US (occurrence: US)
  Receive Date: 20200527
  Receipt Date: 20200527
  Transmission Date: 20200714
  Serious: Yes (Hospitalization)
  Sender: FDA-Public Use
  Company Number: None

PATIENT
  Sex: Male

DRUGS (1)
  1. IBRANCE [Suspect]
     Active Substance: PALBOCICLIB
     Indication: DRUG THERAPY
     Dosage: ?          OTHER FREQUENCY:QD 21DAYS,THEN7OFF;?
     Route: 048
     Dates: start: 20190402

REACTIONS (2)
  - Haematochezia [None]
  - Therapy interrupted [None]
